FAERS Safety Report 8099046-4 (Version None)
Quarter: 2012Q1

REPORT INFORMATION
  Report Type: 
  Country: None (occurrence: None)
  Receive Date: 20120126
  Receipt Date: 20120116
  Transmission Date: 20120608
  Serious: Yes (Hospitalization, Other)
  Sender: FDA-Public Use
  Company Number: 2012P1002851

PATIENT
  Age: 58 Year
  Sex: Male

DRUGS (3)
  1. RISPERIDONE [Suspect]
     Dosage: 5 MG;QD;
  2. METHADONE [Concomitant]
  3. CLONAZEPAM [Concomitant]

REACTIONS (7)
  - BULBAR PALSY [None]
  - GYNAECOMASTIA [None]
  - AREFLEXIA [None]
  - DYSPHAGIA [None]
  - WEIGHT DECREASED [None]
  - ASPIRATION [None]
  - BLOOD PROLACTIN ABNORMAL [None]
